FAERS Safety Report 10487935 (Version 1)
Quarter: 2014Q4

REPORT INFORMATION
  Report Type: Spontaneous
  Country: DE (occurrence: DE)
  Receive Date: 20141001
  Receipt Date: 20141001
  Transmission Date: 20150528
  Serious: Yes (Hospitalization)
  Sender: FDA-Public Use
  Company Number: DE-ACTAVIS-2014-20944

PATIENT
  Age: 73 Year
  Sex: Female
  Weight: 72 kg

DRUGS (2)
  1. VALSARTAN (UNKNOWN) [Suspect]
     Active Substance: VALSARTAN
     Indication: HYPERTENSION
     Dosage: 320 MG, UNKNOWN
     Route: 048
  2. SIMVASTATIN (UNKNOWN) [Suspect]
     Active Substance: SIMVASTATIN
     Indication: HYPERCHOLESTEROLAEMIA
     Dosage: 40 MG, UNKNOWN
     Route: 048

REACTIONS (1)
  - Blood creatine phosphokinase increased [Unknown]

NARRATIVE: CASE EVENT DATE: 20140828
